FAERS Safety Report 8852086 (Version 2)
Quarter: 2012Q4

REPORT INFORMATION
  Report Type: 
  Country: JP (occurrence: JP)
  Receive Date: 20121022
  Receipt Date: 20121129
  Transmission Date: 20130627
  Serious: Yes (Other)
  Sender: FDA-Public Use
  Company Number: JP-009507513-1210JPN007994

PATIENT
  Age: 43 Year
  Sex: Female
  Weight: 33 kg

DRUGS (9)
  1. REFLEX [Suspect]
     Indication: DEPRESSION
     Dosage: 30 mg daily
     Route: 048
     Dates: start: 20120721, end: 20120808
  2. REFLEX [Suspect]
     Dosage: 15 mg daily
     Route: 048
     Dates: start: 20120714, end: 20120720
  3. FLUVOXAMINE MALEATE [Concomitant]
     Dosage: UNK
     Route: 048
  4. FLUVOXAMINE MALEATE [Concomitant]
     Dosage: 300 mg daily
     Route: 048
     Dates: start: 20120702
  5. OLANZAPINE [Concomitant]
     Dosage: 2.5 mg daily
     Route: 048
  6. OLANZAPINE [Concomitant]
     Dosage: 5 mg daily
     Route: 048
     Dates: start: 20120702
  7. BROTIZOLAM [Concomitant]
     Dosage: 0.25mg daily
     Route: 048
  8. THYROID [Concomitant]
     Dosage: 25 mg daily
     Route: 048
  9. THYROID [Concomitant]
     Dosage: UNK
     Route: 048
     Dates: start: 20120702

REACTIONS (2)
  - Hepatic function abnormal [Recovered/Resolved]
  - White blood cell count decreased [Recovering/Resolving]
